FAERS Safety Report 11688706 (Version 2)
Quarter: 2015Q4

REPORT INFORMATION
  Report Type: Report from Study
  Country: CA (occurrence: CA)
  Receive Date: 20151102
  Receipt Date: 20151207
  Transmission Date: 20160304
  Serious: Yes (Other)
  Sender: FDA-Public Use
  Company Number: CA-ROCHE-1629292

PATIENT
  Sex: Male

DRUGS (27)
  1. RABEPRAZOLE [Concomitant]
     Active Substance: RABEPRAZOLE
  2. LEVOCARB [Concomitant]
     Active Substance: CARBIDOPA\LEVODOPA
  3. MIRTAZAPINE. [Concomitant]
     Active Substance: MIRTAZAPINE
  4. LIPITOR [Concomitant]
     Active Substance: ATORVASTATIN CALCIUM
  5. DOXAZOSIN [Concomitant]
     Active Substance: DOXAZOSIN\DOXAZOSIN MESYLATE
  6. METHOTREXATE [Concomitant]
     Active Substance: METHOTREXATE
  7. OXAZEPAM. [Concomitant]
     Active Substance: OXAZEPAM
  8. CLONIDINE. [Concomitant]
     Active Substance: CLONIDINE
  9. EFFEXOR [Concomitant]
     Active Substance: VENLAFAXINE HYDROCHLORIDE
  10. DETROL [Concomitant]
     Active Substance: TOLTERODINE TARTRATE
  11. AZOPT [Concomitant]
     Active Substance: BRINZOLAMIDE
  12. RISPERDAL [Concomitant]
     Active Substance: RISPERIDONE
  13. HCTZ [Concomitant]
     Active Substance: HYDROCHLOROTHIAZIDE
  14. ACETYLSALICYLIC ACID [Concomitant]
     Active Substance: ASPIRIN
  15. VOLTAREN [Concomitant]
     Active Substance: DICLOFENAC SODIUM
  16. PREDNISONE. [Concomitant]
     Active Substance: PREDNISONE
  17. SYNTHROID [Concomitant]
     Active Substance: LEVOTHYROXINE SODIUM
  18. ADALAT [Concomitant]
     Active Substance: NIFEDIPINE
  19. HYDRALAZINE [Concomitant]
     Active Substance: HYDRALAZINE HYDROCHLORIDE
  20. LISINOPRIL. [Concomitant]
     Active Substance: LISINOPRIL
  21. ACTEMRA [Suspect]
     Active Substance: TOCILIZUMAB
     Indication: RHEUMATOID ARTHRITIS
     Route: 042
     Dates: start: 20150507
  22. CELEBREX [Concomitant]
     Active Substance: CELECOXIB
  23. TELMISARTAN. [Concomitant]
     Active Substance: TELMISARTAN
  24. FOLIC ACID. [Concomitant]
     Active Substance: FOLIC ACID
  25. HYDROXYCHLOROQUINE [Concomitant]
     Active Substance: HYDROXYCHLOROQUINE
  26. DOCUSATE [Concomitant]
     Active Substance: DOCUSATE
  27. EFUDEX [Concomitant]
     Active Substance: FLUOROURACIL

REACTIONS (3)
  - Intestinal polyp [Not Recovered/Not Resolved]
  - Prostatic disorder [Unknown]
  - Arthralgia [Not Recovered/Not Resolved]
